FAERS Safety Report 14706158 (Version 3)
Quarter: 2018Q2

REPORT INFORMATION
  Report Type: Spontaneous
  Country: JP (occurrence: JP)
  Receive Date: 20180402
  Receipt Date: 20180502
  Transmission Date: 20180711
  Serious: Yes (Hospitalization)
  Sender: FDA-Public Use
  Company Number: JP-SA-2018SA094554

PATIENT
  Age: 72 Year

DRUGS (3)
  1. AMARYL [Suspect]
     Active Substance: GLIMEPIRIDE
     Indication: TYPE 2 DIABETES MELLITUS
     Route: 048
  2. JANUVIA [Concomitant]
     Active Substance: SITAGLIPTIN PHOSPHATE
     Dosage: 620?CALORIE INFUSION PER DAY
     Route: 048
  3. ACARBOSE. [Concomitant]
     Active Substance: ACARBOSE
     Dosage: ACARBOSE (ALPHA-GI)
     Route: 048

REACTIONS (2)
  - Pneumonia [Unknown]
  - Hyperthermia [Unknown]
